FAERS Safety Report 9458030 (Version 1)
Quarter: 2013Q3

REPORT INFORMATION
  Report Type: Spontaneous
  Country: US (occurrence: US)
  Receive Date: 20130814
  Receipt Date: 20130814
  Transmission Date: 20140515
  Serious: Yes (Other)
  Sender: FDA-Public Use
  Company Number: US-JNJFOC-20130805554

PATIENT
  Age: 42 Year
  Sex: Female
  Weight: 72.58 kg

DRUGS (3)
  1. ELMIRON [Suspect]
     Indication: CYSTITIS INTERSTITIAL
     Route: 048
     Dates: start: 20130717
  2. AMBIEN [Concomitant]
     Indication: INSOMNIA
     Dosage: AT NIGHT AS NEEDED
     Route: 048
     Dates: start: 201205
  3. ULTRAM [Concomitant]
     Indication: PAIN
     Dosage: AS NEEDED
     Route: 048
     Dates: start: 20130717

REACTIONS (1)
  - Jaundice [Not Recovered/Not Resolved]
